FAERS Safety Report 12372898 (Version 1)
Quarter: 2016Q2

REPORT INFORMATION
  Report Type: Spontaneous
  Country: AR (occurrence: AR)
  Receive Date: 20160516
  Receipt Date: 20160516
  Transmission Date: 20160815
  Serious: Yes (Other)
  Sender: FDA-Public Use
  Company Number: AR-BAYER-2016-091201

PATIENT
  Age: 65 Year
  Sex: Male

DRUGS (2)
  1. BAYASPIRINA [Suspect]
     Active Substance: ASPIRIN
     Indication: INFLUENZA
     Dosage: 1 DF, BID
     Route: 048
     Dates: start: 201605
  2. ENALAPRIL [Concomitant]
     Active Substance: ENALAPRIL
     Indication: HYPERTENSION

REACTIONS (2)
  - Headache [Unknown]
  - Hypertensive crisis [Unknown]
